FAERS Safety Report 17950864 (Version 1)
Quarter: 2020Q2

REPORT INFORMATION
  Report Type: Spontaneous
  Country: US (occurrence: US)
  Receive Date: 20200626
  Receipt Date: 20200626
  Transmission Date: 20200714
  Serious: Yes (Disabling, Other)
  Sender: FDA-Public Use
  Company Number: US-NOVOPROD-735798

PATIENT
  Sex: Female

DRUGS (1)
  1. FIASP [Suspect]
     Active Substance: INSULIN ASPART
     Indication: PRODUCT USED FOR UNKNOWN INDICATION
     Dosage: UNK
     Route: 058

REACTIONS (7)
  - Disability [Unknown]
  - Wrist fracture [Unknown]
  - Cancer in remission [Recovering/Resolving]
  - Malaise [Unknown]
  - Asthenia [Unknown]
  - Mastectomy [Unknown]
  - Infection [Unknown]
